FAERS Safety Report 9324744 (Version 2)
Quarter: 2013Q2

REPORT INFORMATION
  Report Type: Spontaneous
  Country: US (occurrence: None)
  Receive Date: 20130529
  Receipt Date: 20130531
  Transmission Date: 20140414
  Serious: Yes (Hospitalization)
  Sender: FDA-Public Use
  Company Number: JPI-P-032100

PATIENT
  Age: 33 Year
  Sex: Male

DRUGS (2)
  1. XYREM [Suspect]
     Indication: NARCOLEPSY
     Dosage: (4.5 GM, 2 IN 1 D)
     Route: 048
     Dates: start: 20111019
  2. METHAMPHETAMINE [Concomitant]

REACTIONS (1)
  - Mental disorder [None]
